FAERS Safety Report 17163669 (Version 43)
Quarter: 2021Q4

REPORT INFORMATION
  Report Type: Other
  Country: DE (occurrence: DE)
  Receive Date: 20191217
  Receipt Date: 20211213
  Transmission Date: 20220303
  Serious: Yes (Hospitalization, Other)
  Sender: FDA-Public Use
  Company Number: DE-ROCHE-2398329

PATIENT
  Age: 52 Year
  Sex: Female
  Weight: 62 kg

DRUGS (46)
  1. TOZINAMERAN [Suspect]
     Active Substance: TOZINAMERAN
     Indication: Product used for unknown indication
     Dosage: SECOND DOSE: 26/MAY/2021
     Route: 065
     Dates: start: 20210415, end: 20210415
  2. CORTISONE [Suspect]
     Active Substance: CORTISONE
     Indication: Product used for unknown indication
     Dosage: ALTERNATIVE TO VOLON A
     Route: 065
     Dates: start: 20200810, end: 20200813
  3. OCREVUS [Suspect]
     Active Substance: OCRELIZUMAB
     Indication: Relapsing-remitting multiple sclerosis
     Dosage: FREQUENCY DEVIATING FROM SPC
     Route: 042
     Dates: start: 20180523
  4. OCREVUS [Suspect]
     Active Substance: OCRELIZUMAB
     Indication: Rheumatoid arthritis
     Route: 042
     Dates: start: 20181212
  5. OCREVUS [Suspect]
     Active Substance: OCRELIZUMAB
     Indication: Progressive relapsing multiple sclerosis
     Route: 042
     Dates: start: 20190606
  6. OCREVUS [Suspect]
     Active Substance: OCRELIZUMAB
     Dosage: 5TH INFUSION
     Route: 042
     Dates: start: 20191205
  7. OCREVUS [Suspect]
     Active Substance: OCRELIZUMAB
     Dosage: FREQUENCY WAS 182 DAYS
     Route: 042
     Dates: start: 20180523
  8. PANTOPRAZOLE [Suspect]
     Active Substance: PANTOPRAZOLE
     Indication: Product used for unknown indication
     Dosage: 40 MILLIGRAM AS REQUIRED
     Route: 065
  9. PANTOPRAZOLE [Suspect]
     Active Substance: PANTOPRAZOLE
     Dosage: 40 MILLIGRAM
     Route: 065
  10. NOVALGIN (METAMIZOLE SODIUM) [Concomitant]
     Active Substance: METAMIZOLE SODIUM
     Dosage: AS REQUIRED
     Route: 065
  11. CANNABIS SATIVA SUBSP. INDICA TOP [Concomitant]
     Active Substance: CANNABIS SATIVA SUBSP. INDICA TOP
  12. IBUPROFEN [Concomitant]
     Active Substance: IBUPROFEN
     Dosage: AS REQUIRED
     Route: 065
  13. TRIAMCINOLONE ACETONIDE [Concomitant]
     Active Substance: TRIAMCINOLONE ACETONIDE
     Indication: Muscle spasticity
     Dosage: ADMINISTERED INTO THE LIQUOR CEREBROSINALIS
     Route: 065
     Dates: end: 20181004
  14. TRIAMCINOLONE ACETONIDE [Concomitant]
     Active Substance: TRIAMCINOLONE ACETONIDE
     Dosage: ADMINISTERED INTO THE LIQUOR CEREBROSINALIS
     Route: 065
     Dates: start: 20190403
  15. TRIAMCINOLONE ACETONIDE [Concomitant]
     Active Substance: TRIAMCINOLONE ACETONIDE
     Dosage: ADMINISTERED INTO THE LIQUOR CEREBROSPINALIS
     Route: 065
     Dates: start: 20190626, end: 20190626
  16. TRIAMCINOLONE ACETONIDE [Concomitant]
     Active Substance: TRIAMCINOLONE ACETONIDE
     Route: 037
     Dates: start: 20190911
  17. TRIAMCINOLONE ACETONIDE [Concomitant]
     Active Substance: TRIAMCINOLONE ACETONIDE
     Dosage: ADMINISTERED INTO THE LIQUOR CEREBROSPINALIS
     Route: 065
     Dates: end: 201911
  18. TRIAMCINOLONE ACETONIDE [Concomitant]
     Active Substance: TRIAMCINOLONE ACETONIDE
     Dosage: ADMINISTERD INTO THE LIQUOR CEREBROSPINALIS
     Route: 037
     Dates: start: 20200409
  19. DOMPERIDONE [Concomitant]
     Active Substance: DOMPERIDONE
     Dosage: AS REQUIRED
     Route: 065
  20. CHOLECALCIFEROL [Concomitant]
     Active Substance: CHOLECALCIFEROL
     Dosage: 1 PER WEEK EVERY THREE MONTHS
     Route: 065
  21. ALBUTEROL [Concomitant]
     Active Substance: ALBUTEROL
     Dosage: AS REQUIRED
     Route: 065
  22. NABIXIMOLS [Concomitant]
     Active Substance: NABIXIMOLS
     Dosage: AS REQUIRED
     Route: 065
  23. RAMIPRIL [Concomitant]
     Active Substance: RAMIPRIL
     Dosage: IN THE EVENING
     Route: 065
  24. RAMIPRIL [Concomitant]
     Active Substance: RAMIPRIL
     Dosage: 1-0-1
     Route: 065
     Dates: start: 20190701
  25. RAMIPRIL [Concomitant]
     Active Substance: RAMIPRIL
     Dosage: AS REQUIRED
     Route: 065
  26. RAMIPRIL [Concomitant]
     Active Substance: RAMIPRIL
     Route: 065
  27. FORMOTEROL FUMARATE [Concomitant]
     Active Substance: FORMOTEROL FUMARATE
     Route: 065
  28. ESTRIOL [Concomitant]
     Active Substance: ESTRIOL
     Dosage: CURRENTLY PAUSED
     Route: 065
  29. D-MANNOSE [Concomitant]
     Route: 065
  30. PANTOPRAZOLE SODIUM [Concomitant]
     Active Substance: PANTOPRAZOLE SODIUM
     Route: 065
  31. PANTOPRAZOLE SODIUM [Concomitant]
     Active Substance: PANTOPRAZOLE SODIUM
     Dosage: AS REQUIRED
     Route: 065
  32. CORTISONE [Concomitant]
     Active Substance: CORTISONE
     Indication: Premedication
     Route: 065
  33. CORTISONE [Concomitant]
     Active Substance: CORTISONE
     Route: 065
     Dates: start: 20190405
  34. CORTISONE [Concomitant]
     Active Substance: CORTISONE
     Route: 065
  35. INFLUENZA VIRUS VACCINE [Concomitant]
     Active Substance: INFLUENZA VIRUS VACCINE
     Indication: Product used for unknown indication
     Route: 065
     Dates: start: 20181018, end: 20181018
  36. NITROFURANTOIN [Concomitant]
     Active Substance: NITROFURANTOIN
     Indication: Product used for unknown indication
     Route: 065
  37. FOSFOMYCIN [Concomitant]
     Active Substance: FOSFOMYCIN
     Indication: Urinary tract infection
     Route: 065
     Dates: start: 20181111
  38. FOSFOMYCIN [Concomitant]
     Active Substance: FOSFOMYCIN
     Dosage: AS REQUIRED
     Route: 065
  39. CEFUROXIME AXETIL [Concomitant]
     Active Substance: CEFUROXIME AXETIL
     Indication: Nasopharyngitis
     Route: 065
     Dates: start: 20190227, end: 20190301
  40. SULFAMETHOXAZOLE\TRIMETHOPRIM [Concomitant]
     Active Substance: SULFAMETHOXAZOLE\TRIMETHOPRIM
     Route: 065
  41. FOLIC ACID [Concomitant]
     Active Substance: FOLIC ACID
  42. HEPARIN [Concomitant]
     Active Substance: HEPARIN SODIUM
     Dates: start: 20200618
  43. XIPAMIDE [Concomitant]
     Active Substance: XIPAMIDE
  44. NOVALGIN (METAMIZOLE SODIUM) [Concomitant]
     Active Substance: METAMIZOLE SODIUM
  45. DOMPERIDONE [Concomitant]
     Active Substance: DOMPERIDONE
  46. PANTOPRAZOLE [Concomitant]
     Active Substance: PANTOPRAZOLE

REACTIONS (67)
  - Cardiac failure [Not Recovered/Not Resolved]
  - Urinary tract infection bacterial [Recovered/Resolved]
  - Fracture [Recovered/Resolved]
  - Irritability [Not Recovered/Not Resolved]
  - Vulvovaginal dryness [Unknown]
  - Cystitis noninfective [Recovered/Resolved]
  - Alopecia [Not Recovered/Not Resolved]
  - Dry skin [Recovered/Resolved]
  - Vision blurred [Not Recovered/Not Resolved]
  - Paraesthesia [Not Recovered/Not Resolved]
  - Anal incontinence [Not Recovered/Not Resolved]
  - Eyelid ptosis [Recovered/Resolved]
  - Migraine [Not Recovered/Not Resolved]
  - Oedema [Recovered/Resolved]
  - Influenza like illness [Recovered/Resolved]
  - Paraesthesia [Not Recovered/Not Resolved]
  - Periorbital swelling [Recovered/Resolved]
  - Muscular weakness [Recovered/Resolved]
  - Fatigue [Recovered/Resolved]
  - Bone pain [Not Recovered/Not Resolved]
  - Osteoporosis [Not Recovered/Not Resolved]
  - Initial insomnia [Not Recovered/Not Resolved]
  - Listless [Recovered/Resolved]
  - Blood cholesterol increased [Not Recovered/Not Resolved]
  - Sensation of foreign body [Recovered/Resolved]
  - Inappropriate affect [Recovered/Resolved]
  - Dyspepsia [Recovered/Resolved]
  - Oral discomfort [Recovered/Resolved]
  - Fall [Unknown]
  - Pain [Recovered/Resolved]
  - Back pain [Not Recovered/Not Resolved]
  - Chills [Recovered/Resolved]
  - Illness [Recovered/Resolved]
  - Bone density increased [Not Recovered/Not Resolved]
  - Seborrhoeic keratosis [Not Recovered/Not Resolved]
  - Blood pressure increased [Recovering/Resolving]
  - Chronic gastritis [Not Recovered/Not Resolved]
  - Constipation [Recovered/Resolved]
  - Weight increased [Not Recovered/Not Resolved]
  - Muscle spasticity [Not Recovered/Not Resolved]
  - Asthenia [Not Recovered/Not Resolved]
  - Insomnia [Not Recovered/Not Resolved]
  - Muscular weakness [Not Recovered/Not Resolved]
  - Throat irritation [Recovered/Resolved]
  - Vitamin D decreased [Not Recovered/Not Resolved]
  - Low density lipoprotein increased [Not Recovered/Not Resolved]
  - Abdominal distension [Recovered/Resolved]
  - Oral herpes [Recovered/Resolved]
  - Fluid retention [Recovered/Resolved]
  - Depressed mood [Recovered/Resolved]
  - Depression [Recovered/Resolved]
  - Meningism [Recovered/Resolved]
  - Cataract [Not Recovered/Not Resolved]
  - Anal inflammation [Recovered/Resolved]
  - Anal incontinence [Recovered/Resolved]
  - Back pain [Not Recovered/Not Resolved]
  - Dysstasia [Not Recovered/Not Resolved]
  - Cushing^s syndrome [Not Recovered/Not Resolved]
  - Ligament sprain [Recovered/Resolved]
  - Initial insomnia [Not Recovered/Not Resolved]
  - B-lymphocyte count decreased [Not Recovered/Not Resolved]
  - Uterine enlargement [Not Recovered/Not Resolved]
  - Feeling hot [Recovered/Resolved]
  - Erythema [Recovered/Resolved]
  - Skin induration [Recovered/Resolved]
  - Sinus disorder [Recovered/Resolved]
  - Emotional distress [Recovered/Resolved]

NARRATIVE: CASE EVENT DATE: 20180523
